FAERS Safety Report 8774143 (Version 1)
Quarter: 2012Q4

REPORT INFORMATION
  Report Type: 
  Country: FR (occurrence: FR)
  Receive Date: 20120907
  Receipt Date: 20120907
  Transmission Date: 20130627
  Serious: Yes (Hospitalization)
  Sender: FDA-Public Use
  Company Number: PHHY2012FR077551

PATIENT
  Age: 64 Year
  Sex: Male

DRUGS (1)
  1. LESCOL [Suspect]
     Dosage: 40 mg, QD
     Route: 048
     Dates: end: 20110825

REACTIONS (10)
  - Cholestasis [Recovered/Resolved]
  - Hepatocellular injury [Recovered/Resolved]
  - Hepatic steatosis [Unknown]
  - Inflammation [Unknown]
  - Infection [Unknown]
  - Hyperthermia [Unknown]
  - Arthralgia [Unknown]
  - Renal failure [Unknown]
  - Dysuria [Unknown]
  - Pollakiuria [Unknown]
